FAERS Safety Report 10076879 (Version 3)
Quarter: 2014Q2

REPORT INFORMATION
  Report Type: Spontaneous
  Country: US (occurrence: US)
  Receive Date: 20140414
  Receipt Date: 20140612
  Transmission Date: 20141212
  Serious: Yes (Hospitalization)
  Sender: FDA-Public Use
  Company Number: US-GLAXOSMITHKLINE-A1036080A

PATIENT
  Sex: Female

DRUGS (1)
  1. AVANDIA [Suspect]
     Indication: DIABETES MELLITUS
     Route: 048

REACTIONS (8)
  - Pulmonary oedema [Unknown]
  - Respiratory failure [Unknown]
  - Myocardial infarction [Unknown]
  - Cardiogenic shock [Unknown]
  - Cardiac disorder [Unknown]
  - Atrial flutter [Unknown]
  - Cardiovascular disorder [Unknown]
  - Pleural effusion [Unknown]
